FAERS Safety Report 8002129-8 (Version None)
Quarter: 2011Q4

REPORT INFORMATION
  Report Type: 
  Country: None (occurrence: None)
  Receive Date: 20111222
  Receipt Date: 20111213
  Transmission Date: 20120403
  Serious: Yes (Death, Other)
  Sender: FDA-Public Use
  Company Number: US-CELGENEUS-163-21880-11082352

PATIENT
  Sex: Female

DRUGS (8)
  1. REVLIMID [Suspect]
     Dosage: 15 MILLIGRAM
     Route: 048
     Dates: start: 20110101
  2. CALCIUM [Concomitant]
     Route: 065
     Dates: start: 20090101, end: 20110802
  3. REVLIMID [Suspect]
     Dosage: 25 MILLIGRAM
     Route: 048
     Dates: start: 20090601, end: 20110802
  4. ASPIRIN [Concomitant]
     Route: 065
     Dates: start: 20090601, end: 20110802
  5. REVLIMID [Suspect]
     Dosage: 25 MILLIGRAM
     Route: 048
     Dates: start: 20090528
  6. DEXAMETHASONE [Concomitant]
     Route: 065
     Dates: start: 20090601, end: 20110802
  7. REVLIMID [Suspect]
     Dosage: 10 MILLIGRAM
     Route: 048
     Dates: start: 20100301
  8. VITAMIN D [Concomitant]
     Route: 065
     Dates: start: 20090101, end: 20110802

REACTIONS (2)
  - HEAD INJURY [None]
  - FALL [None]
